FAERS Safety Report 5488394-X (Version None)
Quarter: 2007Q4

REPORT INFORMATION
  Report Type: 
  Country: None (occurrence: None)
  Receive Date: 20071005
  Receipt Date: 20070817
  Transmission Date: 20080405
  Serious: No
  Sender: FDA-Public Use
  Company Number: PHEH2007US11323

PATIENT
  Sex: Female

DRUGS (2)
  1. TEKTURNA [Suspect]
     Indication: HYPERTENSION
  2. DIOVAN HCT [Suspect]

REACTIONS (3)
  - ASTHENIA [None]
  - DIZZINESS [None]
  - FATIGUE [None]
